FAERS Safety Report 8188492-6 (Version None)
Quarter: 2012Q1

REPORT INFORMATION
  Report Type: 
  Country: None (occurrence: None)
  Receive Date: 20120306
  Receipt Date: 20120301
  Transmission Date: 20120608
  Serious: Yes (Other)
  Sender: FDA-Public Use
  Company Number: PHHY2012BR018647

PATIENT
  Sex: Female

DRUGS (2)
  1. CYCLOSPORINE [Suspect]
  2. CERTICAN [Concomitant]
     Dosage: 1 MG/ DAILY

REACTIONS (1)
  - RENAL DISORDER [None]
